FAERS Safety Report 24309384 (Version 1)
Quarter: 2024Q3

REPORT INFORMATION
  Report Type: Report from Study
  Country: BR (occurrence: BR)
  Receive Date: 20240911
  Receipt Date: 20240911
  Transmission Date: 20241017
  Serious: Yes (Hospitalization)
  Sender: JOHNSON AND JOHNSON
  Company Number: BR-JNJFOC-20240913048

PATIENT
  Age: 80 Year
  Sex: Male
  Weight: 77 kg

DRUGS (1)
  1. TALVEY [Suspect]
     Active Substance: TALQUETAMAB-TGVS
     Indication: Product used for unknown indication
     Route: 058
     Dates: start: 20240802

REACTIONS (9)
  - Adverse reaction [Unknown]
  - Ageusia [Unknown]
  - Sensory loss [Unknown]
  - Decreased appetite [Unknown]
  - Feeding disorder [Unknown]
  - Salivary hypersecretion [Unknown]
  - Oral disorder [Unknown]
  - Diarrhoea [Unknown]
  - Product administration error [Unknown]
